FAERS Safety Report 17759476 (Version 10)
Quarter: 2021Q4

REPORT INFORMATION
  Report Type: Other
  Country: CA (occurrence: None)
  Receive Date: 20200508
  Receipt Date: 20211228
  Transmission Date: 20220303
  Serious: Yes (Hospitalization)
  Sender: FDA-Public Use
  Company Number: CA-ROCHE-2593756

PATIENT
  Age: 68 Year
  Sex: Female

DRUGS (8)
  1. OCREVUS [Suspect]
     Active Substance: OCRELIZUMAB
     Indication: Primary progressive multiple sclerosis
     Dosage: 300 MG ON DAY 0 AND DAY 14 THEN 600 MG EVERY 6 MONTHS
     Route: 042
     Dates: start: 20190611
  2. DALFAMPRIDINE [Concomitant]
     Active Substance: DALFAMPRIDINE
  3. MAGNESIUM [Concomitant]
     Active Substance: MAGNESIUM
  4. VITAMIN A [Concomitant]
     Active Substance: VITAMIN A
  5. LYRICA [Concomitant]
     Active Substance: PREGABALIN
  6. MIRAPEX [Concomitant]
     Active Substance: PRAMIPEXOLE DIHYDROCHLORIDE
  7. BACLOFEN [Concomitant]
     Active Substance: BACLOFEN
  8. PFIZER-BIONTECH COVID-19 VACCINE [Concomitant]
     Active Substance: TOZINAMERAN
     Dosage: 09/APR/2021 AND SECOND ON 22/JUN/2021

REACTIONS (2)
  - Urinary tract infection [Recovered/Resolved]
  - Diarrhoea [Not Recovered/Not Resolved]

NARRATIVE: CASE EVENT DATE: 20200615
